FAERS Safety Report 7512334-2 (Version None)
Quarter: 2011Q2

REPORT INFORMATION
  Report Type: 
  Country: None (occurrence: None)
  Receive Date: 20110531
  Receipt Date: 20110524
  Transmission Date: 20111010
  Serious: Yes (Other)
  Sender: FDA-Public Use
  Company Number: BR-PFIZER INC-BR-WYE-H12263609

PATIENT
  Age: 64 Year
  Sex: Male
  Weight: 78 kg

DRUGS (5)
  1. PREDNISONE [Suspect]
     Indication: RENAL TRANSPLANT
     Dosage: 10 MG, ONCE A DAY
     Route: 048
     Dates: start: 20091008, end: 20091210
  2. MYCOPHENOLATE MOFETIL [Suspect]
     Indication: RENAL TRANSPLANT
     Dosage: 360 MG, 2X/DAY
     Route: 048
     Dates: start: 20090722
  3. PREDNISONE [Suspect]
     Dosage: 5 MG, ONCE A DAY
     Route: 048
     Dates: start: 20100219
  4. SIROLIMUS [Suspect]
     Indication: PROPHYLAXIS AGAINST TRANSPLANT REJECTION
     Dosage: 3 MG, ONCE A DAY
     Route: 048
     Dates: start: 20090623
  5. PREDNISONE [Suspect]
     Dosage: 7.5 MG, ONCE A DAY
     Route: 048
     Dates: start: 20091211, end: 20100218

REACTIONS (2)
  - RENAL TUBULAR ATROPHY [None]
  - KIDNEY FIBROSIS [None]
